FAERS Safety Report 5309787-7 (Version None)
Quarter: 2007Q2

REPORT INFORMATION
  Report Type: 
  Country: None (occurrence: None)
  Receive Date: 20070427
  Receipt Date: 20070111
  Transmission Date: 20071010
  Serious: No
  Sender: FDA-Public Use
  Company Number: US-GLAXOSMITHKLINE-A0635355A

PATIENT
  Age: 35 Year
  Sex: Female

DRUGS (5)
  1. ZOFRAN [Suspect]
     Indication: HYPEREMESIS GRAVIDARUM
     Dosage: 29MG CONTINUOUS
     Route: 042
     Dates: start: 20070109, end: 20070111
  2. CALCIUM CHLORIDE [Concomitant]
  3. FIORICET [Concomitant]
  4. FLEXERIL [Concomitant]
  5. VITAMINS [Concomitant]

REACTIONS (2)
  - DRUG EXPOSURE DURING PREGNANCY [None]
  - RASH GENERALISED [None]
